FAERS Safety Report 9250025 (Version 1)
Quarter: 2013Q2

REPORT INFORMATION
  Report Type: Spontaneous
  Country: DE (occurrence: DE)
  Receive Date: 20130424
  Receipt Date: 20130424
  Transmission Date: 20140414
  Serious: Yes (Other)
  Sender: FDA-Public Use
  Company Number: DE-009507513-1304DEU008805

PATIENT
  Age: 72 Year
  Sex: Male

DRUGS (31)
  1. XELEVIA [Suspect]
     Dosage: 100 MG, UNK
     Route: 048
     Dates: start: 200907
  2. KREON [Concomitant]
     Dosage: UNK
  3. ALLOPURINOL [Concomitant]
     Dosage: UNK
  4. AVIVA [Concomitant]
     Dosage: UNK
  5. AMOXI [Concomitant]
     Dosage: UNK
  6. AGGRENOX [Concomitant]
     Dosage: UNK
  7. IBUFLAM LICHTENSTEIN [Concomitant]
     Dosage: UNK
  8. PANCREATIN [Concomitant]
     Dosage: UNK
  9. LANTUS [Concomitant]
     Dosage: UNK
  10. VALSACOR [Concomitant]
     Dosage: UNK
  11. PANTOPRAZOLE [Concomitant]
  12. NOVAMINSULFON [Concomitant]
  13. AVALOX [Concomitant]
  14. TAMSULO ISIS [Concomitant]
  15. ATORVASTATIN [Concomitant]
  16. METFORMIN [Concomitant]
  17. SIOFOR [Concomitant]
  18. XIPAMIDE [Concomitant]
  19. GLUCOBAY [Concomitant]
  20. DIOVAN [Concomitant]
  21. NOVALGIN (ACETAMINOPHEN (+) CAFFEINE (+) PROPYPHENAZONE) [Concomitant]
  22. VOLTAREN [Concomitant]
  23. HYDROCHLORIC ACID [Concomitant]
  24. METOHEXAL [Concomitant]
  25. KORTIKOID RATIOPHARM [Concomitant]
  26. VOMEX A [Concomitant]
  27. ACETAMINOPHEN [Concomitant]
  28. CRESTOR [Concomitant]
  29. XALATAN [Concomitant]
  30. HERBS (UNSPECIFIED) [Concomitant]
  31. IBUHEXAL [Concomitant]

REACTIONS (1)
  - Pancreatic carcinoma [Not Recovered/Not Resolved]
